FAERS Safety Report 25230615 (Version 1)
Quarter: 2025Q2

REPORT INFORMATION
  Report Type: Spontaneous
  Country: BR (occurrence: BR)
  Receive Date: 20250423
  Receipt Date: 20250423
  Transmission Date: 20250717
  Serious: Yes (Other)
  Sender: SANDOZ
  Company Number: BR-002147023-NVSC2023BR120755

PATIENT
  Sex: Female

DRUGS (1)
  1. BUDESONIDE\FORMOTEROL FUMARATE [Suspect]
     Active Substance: BUDESONIDE\FORMOTEROL FUMARATE
     Indication: Product used for unknown indication
     Dosage: 12/400 MCG (60 CAPSULE), QD
     Route: 065

REACTIONS (10)
  - Pneumonia [Unknown]
  - Spinal fracture [Unknown]
  - Feeling abnormal [Unknown]
  - Chikungunya virus infection [Not Recovered/Not Resolved]
  - COVID-19 [Unknown]
  - Emphysema [Unknown]
  - Tremor [Unknown]
  - Dyspnoea [Unknown]
  - Fatigue [Unknown]
  - Product availability issue [Unknown]
